FAERS Safety Report 6781366-4 (Version None)
Quarter: 2010Q2

REPORT INFORMATION
  Report Type: 
  Country: None (occurrence: None)
  Receive Date: 20100617
  Receipt Date: 20100617
  Transmission Date: 20101027
  Serious: Yes (Life-Threatening, Hospitalization, Other)
  Sender: FDA-Public Use
  Company Number: None

PATIENT
  Sex: Female

DRUGS (5)
  1. LEVAQUIN [Suspect]
     Indication: PULMONARY CONGESTION
     Dosage: 1 TABLET DAILY ORAL
     Route: 048
     Dates: start: 20100523
  2. CHERATUSSIN AC SYRUP [Suspect]
     Indication: COUGH
     Dosage: 2 TSPN 4X DAILY AS NEEDED ORAL
     Route: 048
     Dates: start: 20100524
  3. ATENOLOL -CHLORTHAL [Concomitant]
  4. LEVOTHYROXINE [Concomitant]
  5. KLOR-CON [Concomitant]

REACTIONS (5)
  - HEART RATE DECREASED [None]
  - HYPERHIDROSIS [None]
  - NAUSEA [None]
  - SYNCOPE [None]
  - VOMITING [None]
